FAERS Safety Report 4404182-7 (Version None)
Quarter: 2004Q3

REPORT INFORMATION
  Report Type: 
  Country: None (occurrence: None)
  Receive Date: 20040721
  Receipt Date: 20040721
  Transmission Date: 20050211
  Serious: No
  Sender: FDA-Public Use
  Company Number: None

PATIENT
  Age: 53 Year
  Sex: Male
  Weight: 83.8 kg

DRUGS (12)
  1. COUMADIN [Suspect]
     Indication: DEEP VEIN THROMBOSIS
     Dosage: ORAL
     Route: 048
  2. COUMADIN [Suspect]
     Indication: PULMONARY EMBOLISM
     Dosage: ORAL
     Route: 048
  3. BACLOFEN [Concomitant]
  4. ACETAMINOPHEN [Concomitant]
  5. BISACODYL (MAGIC BULLET) [Concomitant]
  6. ENOXAPARIN [Concomitant]
  7. FLUCONAZOLE [Concomitant]
  8. METOCLOPRAMIDE HCL [Concomitant]
  9. PAROXETINE HCL [Concomitant]
  10. POTASSIUM CHLORIDE [Concomitant]
  11. DIAZEPAM [Concomitant]
  12. SENNOSIDE [Concomitant]

REACTIONS (1)
  - INTERNATIONAL NORMALISED RATIO INCREASED [None]
